FAERS Safety Report 23058151 (Version 1)
Quarter: 2023Q4

REPORT INFORMATION
  Report Type: Spontaneous
  Country: GB (occurrence: GB)
  Receive Date: 20231012
  Receipt Date: 20231012
  Transmission Date: 20240109
  Serious: Yes (Other)
  Sender: FDA-Public Use
  Company Number: GB-MHRA-MED-202309291713445700-TQFRK

PATIENT
  Age: 79 Year
  Sex: Female
  Weight: 51 kg

DRUGS (1)
  1. FLUOXETINE [Suspect]
     Active Substance: FLUOXETINE HYDROCHLORIDE
     Indication: Raynaud^s phenomenon
     Dosage: CAN^T REMEMBER THE MG;
     Dates: start: 20221008, end: 20221103

REACTIONS (4)
  - Loss of personal independence in daily activities [Unknown]
  - Sleep disorder [Unknown]
  - Angioedema [Not Recovered/Not Resolved]
  - Product use in unapproved indication [Unknown]

NARRATIVE: CASE EVENT DATE: 20221008
